FAERS Safety Report 20893235 (Version 2)
Quarter: 2022Q2

REPORT INFORMATION
  Report Type: Spontaneous
  Country: TH (occurrence: TH)
  Receive Date: 20220531
  Receipt Date: 20220603
  Transmission Date: 20220720
  Serious: Yes (Hospitalization)
  Sender: FDA-Public Use
  Company Number: TH-MLMSERVICE-20220520-3571425-1

PATIENT
  Age: 7 Decade
  Sex: Female
  Weight: 50 kg

DRUGS (7)
  1. LORAZEPAM [Suspect]
     Active Substance: LORAZEPAM
     Indication: Product used for unknown indication
     Route: 048
  2. ALPRAZOLAM [Suspect]
     Active Substance: ALPRAZOLAM
     Indication: Product used for unknown indication
     Route: 048
  3. TRAZODONE [Concomitant]
     Active Substance: TRAZODONE HYDROCHLORIDE
     Indication: Insomnia
  4. DIAZEPAM [Concomitant]
     Active Substance: DIAZEPAM
     Indication: Insomnia
  5. CLARITHROMYCIN [Concomitant]
     Active Substance: CLARITHROMYCIN
     Indication: Helicobacter gastritis
  6. OMEPRAZOLE [Concomitant]
     Active Substance: OMEPRAZOLE
     Indication: Helicobacter gastritis
  7. AMOXICILLIN [Concomitant]
     Active Substance: AMOXICILLIN
     Indication: Helicobacter gastritis

REACTIONS (5)
  - Areflexia [Recovering/Resolving]
  - Coma [Recovered/Resolved]
  - Sedation [Recovered/Resolved]
  - Loss of consciousness [Recovered/Resolved]
  - Overdose [Unknown]
